FAERS Safety Report 6155534-9 (Version None)
Quarter: 2009Q2

REPORT INFORMATION
  Report Type: 
  Country: None (occurrence: None)
  Receive Date: 20090415
  Receipt Date: 20090408
  Transmission Date: 20091009
  Serious: Yes (Hospitalization)
  Sender: FDA-Public Use
  Company Number: US-ELI_LILLY_AND_COMPANY-US200904001799

PATIENT
  Sex: Male

DRUGS (2)
  1. HUMALOG [Suspect]
     Dosage: 3 U, UNK
  2. HUMALOG [Suspect]
     Dosage: UNK, AS NEEDED

REACTIONS (1)
  - ORTHOPEDIC PROCEDURE [None]
